FAERS Safety Report 7271128-6 (Version None)
Quarter: 2011Q1

REPORT INFORMATION
  Report Type: 
  Country: None (occurrence: None)
  Receive Date: 20110202
  Receipt Date: 20110125
  Transmission Date: 20110831
  Serious: Yes (Hospitalization)
  Sender: FDA-Public Use
  Company Number: US-GILEAD-2010-0034775

PATIENT
  Sex: Female

DRUGS (12)
  1. ATENOLOL [Concomitant]
  2. WARFARIN [Concomitant]
  3. HYDROCODONE [Concomitant]
  4. LETAIRIS [Suspect]
     Route: 048
     Dates: start: 20110105
  5. ZOCOR [Concomitant]
  6. POTASSIUM CHLORIDE [Concomitant]
  7. LETAIRIS [Suspect]
     Indication: PULMONARY ARTERIAL HYPERTENSION
     Route: 048
     Dates: start: 20101104
  8. MECLIZINE [Concomitant]
  9. LASIX [Concomitant]
  10. RYTHMOL [Concomitant]
  11. SYNTHROID [Concomitant]
  12. PRILOSEC [Concomitant]

REACTIONS (2)
  - PALPITATIONS [None]
  - PNEUMONIA [None]
